FAERS Safety Report 9670829 (Version 2)
Quarter: 2014Q1

REPORT INFORMATION
  Report Type: Spontaneous
  Country: DE (occurrence: DE)
  Receive Date: 20131106
  Receipt Date: 20140211
  Transmission Date: 20141002
  Serious: Yes (Life-Threatening, Hospitalization)
  Sender: FDA-Public Use
  Company Number: DE-JNJFOC-20131100266

PATIENT
  Age: 64 Year
  Sex: Male
  Weight: 90 kg

DRUGS (5)
  1. XARELTO [Suspect]
     Indication: CEREBROVASCULAR ACCIDENT PROPHYLAXIS
     Route: 048
     Dates: start: 20131211, end: 20131212
  2. XARELTO [Suspect]
     Indication: ATRIAL FIBRILLATION
     Route: 048
     Dates: start: 20131211, end: 20131212
  3. METOPROLOL [Concomitant]
     Route: 065
  4. RAMIPRIL [Concomitant]
     Route: 065
  5. SIMVA [Concomitant]
     Route: 065

REACTIONS (1)
  - Haemorrhagic stroke [Not Recovered/Not Resolved]
